FAERS Safety Report 7776698-7 (Version None)
Quarter: 2011Q3

REPORT INFORMATION
  Report Type: 
  Country: None (occurrence: None)
  Receive Date: 20110926
  Receipt Date: 20110209
  Transmission Date: 20111222
  Serious: No
  Sender: FDA-Public Use
  Company Number: US-BAYER-2011-013673

PATIENT
  Age: 38 Year
  Sex: Female
  Weight: 58.957 kg

DRUGS (2)
  1. LEVOXYL [Concomitant]
  2. ULTRAVIST 150 [Suspect]
     Indication: COMPUTERISED TOMOGRAM
     Dosage: UNK UNK, ONCE
     Route: 042
     Dates: start: 20110209, end: 20110209

REACTIONS (3)
  - PRURITUS [None]
  - URTICARIA [None]
  - THROAT IRRITATION [None]
